FAERS Safety Report 10023460 (Version 1)
Quarter: 2014Q1

REPORT INFORMATION
  Report Type: Spontaneous
  Country: US (occurrence: None)
  Receive Date: 20140319
  Receipt Date: 20140319
  Transmission Date: 20141002
  Serious: Yes (Other)
  Sender: FDA-Public Use
  Company Number: None

PATIENT
  Age: 58 Year
  Sex: Male
  Weight: 87.54 kg

DRUGS (2)
  1. TESTOSTERONE CYPIONATE [Suspect]
     Indication: HYPOGONADISM
     Route: 030
     Dates: start: 20140111, end: 20140222
  2. MELATONIN [Concomitant]

REACTIONS (5)
  - Libido decreased [None]
  - Lethargy [None]
  - Product quality issue [None]
  - Product packaging quantity issue [None]
  - Blood glucose decreased [None]
